FAERS Safety Report 6575813-0 (Version None)
Quarter: 2010Q1

REPORT INFORMATION
  Report Type: 
  Country: None (occurrence: None)
  Receive Date: 20100208
  Receipt Date: 20100208
  Transmission Date: 20100710
  Serious: Yes (Hospitalization)
  Sender: FDA-Public Use
  Company Number: None

PATIENT
  Age: 51 Year
  Sex: Male

DRUGS (1)
  1. WINRHO [Suspect]
     Indication: IDIOPATHIC THROMBOCYTOPENIC PURPURA
     Dosage: 31875 IU SINGLE DOSE IV
     Route: 042
     Dates: start: 20090829, end: 20090829

REACTIONS (4)
  - DYSPNOEA [None]
  - HEADACHE [None]
  - INFUSION RELATED REACTION [None]
  - MUSCLE SPASMS [None]
